FAERS Safety Report 14464092 (Version 10)
Quarter: 2019Q1

REPORT INFORMATION
  Report Type: Report from Study
  Country: None (occurrence: NL)
  Receive Date: 20180130
  Receipt Date: 20190311
  Transmission Date: 20190417
  Serious: Yes (Hospitalization, Other)
  Sender: FDA-Public Use
  Company Number: NL-ABBVIE-18K-114-2240684-00

PATIENT
  Age: 61 Year
  Sex: Female

DRUGS (4)
  1. DUODOPA [Suspect]
     Active Substance: CARBIDOPA\LEVODOPA
     Route: 050
  2. DUODOPA [Suspect]
     Active Substance: CARBIDOPA\LEVODOPA
     Dosage: MD 4.1;CD 4.1;ED 3 ,CND 2.8; END 3.0?24 HOUR ADMINISTRATION
     Route: 050
  3. DUODOPA [Suspect]
     Active Substance: CARBIDOPA\LEVODOPA
     Dosage: MD: 4.1, CD: 3.9, ED: 3.0, CND: 3.0, END: 3.0
     Route: 050
  4. DUODOPA [Suspect]
     Active Substance: CARBIDOPA\LEVODOPA
     Indication: PARKINSON^S DISEASE
     Dosage: MD: 4.1, CD: 3.9, ED: 3, CND: 2.4, END: 2.5
     Route: 050
     Dates: start: 20130121

REACTIONS (20)
  - Incontinence [Unknown]
  - Dyskinesia [Not Recovered/Not Resolved]
  - Parkinson^s disease [Not Recovered/Not Resolved]
  - Hallucination [Recovered/Resolved]
  - Hip fracture [Recovered/Resolved]
  - Epilepsy [Not Recovered/Not Resolved]
  - Dysphagia [Not Recovered/Not Resolved]
  - Decreased appetite [Not Recovered/Not Resolved]
  - Cognitive disorder [Not Recovered/Not Resolved]
  - Nightmare [Not Recovered/Not Resolved]
  - Abnormal dreams [Not Recovered/Not Resolved]
  - Wheelchair user [Not Recovered/Not Resolved]
  - Hypophagia [Not Recovered/Not Resolved]
  - Decubitus ulcer [Not Recovered/Not Resolved]
  - Fall [Recovered/Resolved]
  - Gait disturbance [Not Recovered/Not Resolved]
  - Weight decreased [Recovered/Resolved]
  - Fatigue [Not Recovered/Not Resolved]
  - Mobility decreased [Not Recovered/Not Resolved]
  - Pyrexia [Not Recovered/Not Resolved]

NARRATIVE: CASE EVENT DATE: 20180129
